FAERS Safety Report 20231626 (Version 1)
Quarter: 2021Q4

REPORT INFORMATION
  Report Type: Spontaneous
  Country: HU (occurrence: HU)
  Receive Date: 20211227
  Receipt Date: 20211227
  Transmission Date: 20220304
  Serious: Yes (Hospitalization)
  Sender: FDA-Public Use
  Company Number: HU-STRIDES ARCOLAB LIMITED-2021SP031477

PATIENT
  Age: 67 Year
  Sex: Male

DRUGS (8)
  1. TACROLIMUS [Suspect]
     Active Substance: TACROLIMUS
     Indication: Heart transplant
     Dosage: UNK (MAINTENANCE THERAPY; MAINTAIN A TROUGH LEVEL OF 10-15 NG/ML IN THE FIRST 3 MONTHS, THEN 8-10 NG
     Route: 065
  2. THYMOCYTE IMMUNE GLOBULIN NOS [Suspect]
     Active Substance: THYMOCYTE IMMUNE GLOBULIN NOS
     Indication: Heart transplant
     Dosage: UNK (INDUCTION THERAPY FOR 3 DAYS)
     Route: 065
  3. METHYLPREDNISOLONE [Suspect]
     Active Substance: METHYLPREDNISOLONE
     Indication: Heart transplant
     Dosage: UNK (HIGH-DOSE; INDUCTION THERAPY FOR 3 DAYS)
     Route: 065
  4. METHYLPREDNISOLONE [Suspect]
     Active Substance: METHYLPREDNISOLONE
     Dosage: 8 MILLIGRAM ONCE DAILY (MAINTENANCE THERAPY)
     Route: 065
  5. MYCOPHENOLIC ACID [Suspect]
     Active Substance: MYCOPHENOLIC ACID
     Indication: Heart transplant
     Dosage: 720 MILLIGRAM TWICE DAILY
     Route: 065
  6. MYCOPHENOLIC ACID [Suspect]
     Active Substance: MYCOPHENOLIC ACID
     Dosage: UNK (REINITIATED WITH REDUCED DOSE )
     Route: 065
  7. MEROPENEM [Concomitant]
     Active Substance: MEROPENEM
     Indication: Antibiotic prophylaxis
     Dosage: 1000 MILLIGRAM THREE TIMES DAILY FOR 48 HOURS
     Route: 065
  8. VANCOMYCIN [Concomitant]
     Active Substance: VANCOMYCIN
     Indication: Antibiotic prophylaxis
     Dosage: 1000 MILLIGRAM, BID (FOR 48 HOURS)
     Route: 065

REACTIONS (3)
  - Aortic pseudoaneurysm [Recovered/Resolved]
  - Pseudomonas infection [Recovered/Resolved]
  - Infective aortitis [Recovered/Resolved]
